FAERS Safety Report 7878726-7 (Version None)
Quarter: 2011Q4

REPORT INFORMATION
  Report Type: 
  Country: None (occurrence: None)
  Receive Date: 20111028
  Receipt Date: 20111014
  Transmission Date: 20120403
  Serious: Yes (Other)
  Sender: FDA-Public Use
  Company Number: 1000024890

PATIENT
  Age: 72 Year
  Sex: Male
  Weight: 73 kg

DRUGS (1)
  1. ROFLUMILAST (ROFLUMILAST) (TABLETS) [Suspect]
     Indication: CHRONIC OBSTRUCTIVE PULMONARY DISEASE
     Dosage: 500 MCG (500 MCG), ORAL
     Route: 048
     Dates: start: 20111013

REACTIONS (1)
  - DEEP VEIN THROMBOSIS [None]
